FAERS Safety Report 7400974-0 (Version None)
Quarter: 2011Q2

REPORT INFORMATION
  Report Type: 
  Country: None (occurrence: None)
  Receive Date: 20110407
  Receipt Date: 20110325
  Transmission Date: 20111010
  Serious: Yes (Hospitalization)
  Sender: FDA-Public Use
  Company Number: PHHO2011FR05471

PATIENT
  Sex: Female
  Weight: 68.3 kg

DRUGS (12)
  1. BACTRIM [Concomitant]
  2. FUNGIZONE [Concomitant]
  3. NIMESULIDE [Concomitant]
  4. PHOSPHONEUROS [Concomitant]
  5. CORTANCYL [Suspect]
     Indication: RENAL TRANSPLANT
     Dosage: 10 MG, DAILY
     Route: 048
     Dates: start: 20101213
  6. STILNOX [Concomitant]
  7. CARDENSIEL [Concomitant]
  8. CELLCEPT [Suspect]
     Indication: RENAL TRANSPLANT
     Dosage: 3 G, DAILY
     Route: 048
     Dates: start: 20101209
  9. AMLODIPINE BESYLATE [Concomitant]
  10. SIMVASTATIN [Concomitant]
  11. ZELITREX [Concomitant]
  12. NEORAL [Suspect]
     Indication: RENAL TRANSPLANT
     Dosage: 250 MG, DAILY
     Route: 048
     Dates: start: 20101210

REACTIONS (3)
  - DEHYDRATION [None]
  - INFLAMMATION [None]
  - BLOOD CREATININE INCREASED [None]
